FAERS Safety Report 9284512 (Version 1)
Quarter: 2013Q2

REPORT INFORMATION
  Report Type: Spontaneous
  Country: US (occurrence: US)
  Receive Date: 20130510
  Receipt Date: 20130510
  Transmission Date: 20140414
  Serious: No
  Sender: FDA-Public Use
  Company Number: US-COVIDIEN/TYCO HEALTHCARE/MALLINCKRODT-T201301752

PATIENT
  Age: 69 Year
  Sex: Female
  Weight: 54.42 kg

DRUGS (6)
  1. FENTANYL TRANSDERMAL SYSTEM [Suspect]
     Indication: BACK PAIN
     Dosage: 75 MCG/HR, Q 72 HRS
     Route: 062
     Dates: start: 2012
  2. AMBIEN [Concomitant]
     Indication: INSOMNIA
     Dosage: UNK
     Route: 048
  3. XANAX [Concomitant]
     Indication: ANXIETY
     Dosage: UNK
     Route: 048
  4. LISINOPRIL [Concomitant]
     Indication: HYPERTENSION
     Dosage: UNK
     Route: 048
  5. VALIUM                             /00017001/ [Concomitant]
     Indication: ANXIETY
     Dosage: UNK
     Route: 048
  6. NITROSTAT [Concomitant]
     Indication: ANGINA PECTORIS
     Dosage: UNK, PRN
     Route: 048

REACTIONS (1)
  - Dysgeusia [Not Recovered/Not Resolved]
